FAERS Safety Report 7244202-8 (Version None)
Quarter: 2011Q1

REPORT INFORMATION
  Report Type: 
  Country: None (occurrence: None)
  Receive Date: 20110125
  Receipt Date: 20110118
  Transmission Date: 20110831
  Serious: Yes (Death, Life-Threatening, Hospitalization)
  Sender: FDA-Public Use
  Company Number: AU-CELGENEUS-008-20785-11010467

PATIENT
  Sex: Female

DRUGS (2)
  1. THALIDOMIDE [Suspect]
     Route: 048
     Dates: start: 20101208
  2. THALIDOMIDE [Suspect]
     Indication: MULTIPLE MYELOMA
     Route: 048

REACTIONS (3)
  - LOWER RESPIRATORY TRACT INFECTION [None]
  - MULTIPLE MYELOMA [None]
  - RENAL FAILURE ACUTE [None]
